FAERS Safety Report 25976055 (Version 1)
Quarter: 2025Q4

REPORT INFORMATION
  Report Type: Spontaneous
  Country: US (occurrence: None)
  Receive Date: 20251029
  Receipt Date: 20251029
  Transmission Date: 20260117
  Serious: Yes (Hospitalization)
  Sender: FDA-CTU
  Company Number: None

PATIENT
  Sex: Male

DRUGS (10)
  1. LENALIDOMIDE [Suspect]
     Active Substance: LENALIDOMIDE
     Indication: Plasma cell myeloma
     Dosage: FREQUENCY : DAILY;?
     Route: 048
     Dates: start: 20250226
  2. ACYCLOVIR CAP 200MG [Concomitant]
  3. ALLOPURINOL [Concomitant]
     Active Substance: ALLOPURINOL
  4. ASPIRIN CHW 81MG [Concomitant]
  5. CHLORTHALID TAB 25MG [Concomitant]
  6. DEXAMETHASONE [Concomitant]
     Active Substance: DEXAMETHASONE
  7. METOPROL sue TAB 100MG ER [Concomitant]
  8. TAMSULOSIN [Concomitant]
     Active Substance: TAMSULOSIN
  9. V1TAMIN D3 TAB 25MCG [Concomitant]
  10. ZOLPIDEM TAB 10MG [Concomitant]

REACTIONS (2)
  - Pyrexia [None]
  - Therapy interrupted [None]
